FAERS Safety Report 15793378 (Version 1)
Quarter: 2019Q1

REPORT INFORMATION
  Report Type: Spontaneous
  Country: US (occurrence: US)
  Receive Date: 20190107
  Receipt Date: 20190107
  Transmission Date: 20190417
  Serious: No
  Sender: FDA-Public Use
  Company Number: US-ACLARIS THERAPEUTICS-2018US012548

PATIENT
  Age: 70 Year
  Sex: Female

DRUGS (3)
  1. ESKATA [Suspect]
     Active Substance: HYDROGEN PEROXIDE
     Dosage: 1 DF, 3-4 PASSES
     Route: 061
     Dates: start: 20181105, end: 20181105
  2. ESKATA [Suspect]
     Active Substance: HYDROGEN PEROXIDE
     Dosage: 1 DF, 3-4 PASSES
     Route: 061
     Dates: start: 20181210, end: 20181210
  3. ESKATA [Suspect]
     Active Substance: HYDROGEN PEROXIDE
     Indication: SEBORRHOEIC KERATOSIS
     Dosage: 1 DF, 3-4 PASSES
     Route: 061
     Dates: start: 20181015, end: 20181015

REACTIONS (5)
  - Application site swelling [Recovered/Resolved]
  - Pain [Recovered/Resolved]
  - Burning sensation [Recovered/Resolved]
  - Feeling hot [Recovered/Resolved]
  - Swelling of eyelid [Recovered/Resolved]

NARRATIVE: CASE EVENT DATE: 20181105
